FAERS Safety Report 7023352-5 (Version None)
Quarter: 2010Q3

REPORT INFORMATION
  Report Type: 
  Country: None (occurrence: None)
  Receive Date: 20100930
  Receipt Date: 20100922
  Transmission Date: 20110219
  Serious: Yes (Other)
  Sender: FDA-Public Use
  Company Number: BE-ABBOTT-10P-013-0672365-00

PATIENT
  Sex: Male

DRUGS (1)
  1. HUMIRA [Suspect]
     Indication: RHEUMATOID ARTHRITIS
     Dates: start: 20051010

REACTIONS (1)
  - EPIDIDYMAL CYST [None]
